FAERS Safety Report 5753318-4 (Version None)
Quarter: 2008Q2

REPORT INFORMATION
  Report Type: 
  Country: None (occurrence: None)
  Receive Date: 20080530
  Receipt Date: 20080415
  Transmission Date: 20081010
  Serious: No
  Sender: FDA-Public Use
  Company Number: A0718672A

PATIENT
  Age: 67 Year
  Sex: Male

DRUGS (7)
  1. VENTOLIN [Suspect]
     Indication: DRUG USE FOR UNKNOWN INDICATION
     Dosage: 2PUFF AS REQUIRED
     Route: 055
     Dates: start: 20080301
  2. CHANTIX [Concomitant]
  3. ALTACE [Concomitant]
  4. FOLIAMIN [Concomitant]
  5. LIPITOR [Concomitant]
  6. PLAVIX [Concomitant]
  7. ZETIA [Concomitant]

REACTIONS (1)
  - DRUG INEFFECTIVE [None]
